FAERS Safety Report 6206408-6 (Version None)
Quarter: 2009Q2

REPORT INFORMATION
  Report Type: 
  Country: None (occurrence: None)
  Receive Date: 20090527
  Receipt Date: 20090527
  Transmission Date: 20091009
  Serious: No
  Sender: FDA-Public Use
  Company Number: None

PATIENT
  Sex: Male
  Weight: 71.4 kg

DRUGS (1)
  1. SOTRET [Suspect]
     Indication: ACNE CYSTIC
     Dosage: 40 MG TWICE A DAY ORAL
     Route: 048
     Dates: start: 20090211, end: 20090519

REACTIONS (2)
  - PRODUCT SUBSTITUTION ISSUE [None]
  - THERAPEUTIC RESPONSE DECREASED [None]
